FAERS Safety Report 7114621-9 (Version None)
Quarter: 2010Q4

REPORT INFORMATION
  Report Type: 
  Country: None (occurrence: None)
  Receive Date: 20101121
  Receipt Date: 20101108
  Transmission Date: 20110411
  Serious: Yes (Other)
  Sender: FDA-Public Use
  Company Number: US-ELI_LILLY_AND_COMPANY-US201007001610

PATIENT
  Age: 73 Year
  Sex: Female
  Weight: 78.458 kg

DRUGS (10)
  1. CYMBALTA [Suspect]
     Indication: DEPRESSION
     Dosage: 30 MG, UNKNOWN
     Route: 065
     Dates: start: 20090101
  2. CYMBALTA [Suspect]
     Dosage: 30 MG, UNKNOWN
     Route: 065
     Dates: start: 20100617, end: 20100628
  3. ZOCOR [Concomitant]
  4. LISINOPRIL [Concomitant]
     Indication: BLOOD PRESSURE
  5. METOPROLOL TARTRATE [Concomitant]
     Indication: BLOOD PRESSURE
  6. PREVACID [Concomitant]
     Indication: GASTROOESOPHAGEAL REFLUX DISEASE
  7. VALIUM [Concomitant]
     Indication: ANXIETY
  8. ADVIL LIQUI-GELS [Concomitant]
  9. PROVENTIL /USA/ [Concomitant]
     Indication: ASTHMA
  10. TRAMADOL HCL [Concomitant]

REACTIONS (1)
  - HEPATOTOXICITY [None]
